FAERS Safety Report 7932333-6 (Version None)
Quarter: 2011Q4

REPORT INFORMATION
  Report Type: 
  Country: None (occurrence: None)
  Receive Date: 20111121
  Receipt Date: 20111108
  Transmission Date: 20120403
  Serious: Yes (Hospitalization, Other)
  Sender: FDA-Public Use
  Company Number: US-ELI_LILLY_AND_COMPANY-US201110001066

PATIENT
  Sex: Female

DRUGS (9)
  1. ASPIRIN [Concomitant]
  2. NEXIUM [Concomitant]
  3. LISINOPRIL [Concomitant]
  4. MYCOPHENOLATE MOFETIL (CELLCEPT) [Concomitant]
  5. FORTEO [Suspect]
     Dosage: 20 UG, QD
  6. FORTEO [Suspect]
     Indication: OSTEOPOROSIS
     Dosage: 20 UG, QD
     Dates: start: 20101001
  7. CYMBALTA [Concomitant]
  8. TRAZODONE HCL [Concomitant]
  9. FORTEO [Suspect]
     Dosage: 20 UG, QD

REACTIONS (16)
  - BALANCE DISORDER [None]
  - LOSS OF CONSCIOUSNESS [None]
  - ANXIETY [None]
  - NERVOUSNESS [None]
  - HEADACHE [None]
  - EYE PAIN [None]
  - SPEECH DISORDER [None]
  - BLOOD SODIUM DECREASED [None]
  - STRESS [None]
  - FALL [None]
  - PARAESTHESIA [None]
  - DYSARTHRIA [None]
  - INJECTION SITE HAEMATOMA [None]
  - THINKING ABNORMAL [None]
  - CARDIAC MURMUR [None]
  - NECK PAIN [None]
